FAERS Safety Report 6557860-8 (Version None)
Quarter: 2010Q1

REPORT INFORMATION
  Report Type: 
  Country: None (occurrence: None)
  Receive Date: 20100129
  Receipt Date: 20100121
  Transmission Date: 20100710
  Serious: Yes (Hospitalization)
  Sender: FDA-Public Use
  Company Number: ES-PURDUE-GBR-2010-0006053

PATIENT
  Age: 82 Year
  Sex: Female

DRUGS (6)
  1. SEVREDOL TABLETS 20 MG [Suspect]
     Indication: POST HERPETIC NEURALGIA
     Dosage: 30 MG, DAILY
     Route: 048
     Dates: start: 20091117, end: 20091101
  2. LYRICA [Suspect]
     Indication: POST HERPETIC NEURALGIA
     Dosage: 450 MG, TID
     Route: 048
     Dates: start: 20091117, end: 20091101
  3. TEGRETOL [Suspect]
     Indication: POST HERPETIC NEURALGIA
     Dosage: 300 MG, DAILY
     Route: 048
     Dates: start: 20091117, end: 20091101
  4. CARDYL [Concomitant]
     Indication: DYSLIPIDAEMIA
     Dosage: 10 MG, DAILY
     Route: 048
     Dates: start: 20070101
  5. DILUTOL                            /01036501/ [Concomitant]
     Indication: HYPERTENSION
     Dosage: 10 MG, DAILY
     Route: 048
     Dates: start: 20070101
  6. AMIODARONE HCL [Concomitant]
     Indication: ATRIAL FIBRILLATION
     Dosage: 200 MG, DAILY
     Dates: start: 20070101

REACTIONS (2)
  - CONFUSIONAL STATE [None]
  - HEPATITIS ACUTE [None]
